FAERS Safety Report 7264174-X (Version None)
Quarter: 2011Q1

REPORT INFORMATION
  Report Type: 
  Country: None (occurrence: None)
  Receive Date: 20110131
  Receipt Date: 20110124
  Transmission Date: 20110831
  Serious: Yes (Hospitalization)
  Sender: FDA-Public Use
  Company Number: FR-BIOGENIDEC-2011BI002615

PATIENT
  Age: 48 Year
  Sex: Female

DRUGS (5)
  1. CERIS [Concomitant]
  2. PAROXETINE HCL [Concomitant]
  3. TYSABRI [Suspect]
     Indication: MULTIPLE SCLEROSIS
     Route: 042
     Dates: start: 20100924, end: 20101022
  4. IMOVANE [Concomitant]
  5. CALCIPRAT [Concomitant]

REACTIONS (1)
  - ANAPHYLACTIC SHOCK [None]
